FAERS Safety Report 9263052 (Version 2)
Quarter: 2013Q2

REPORT INFORMATION
  Report Type: Spontaneous
  Country: FR (occurrence: FR)
  Receive Date: 20130430
  Receipt Date: 20130513
  Transmission Date: 20140414
  Serious: Yes (Other)
  Sender: FDA-Public Use
  Company Number: FR-ROCHE-1219486

PATIENT
  Sex: 0

DRUGS (1)
  1. XOLAIR [Suspect]
     Indication: PRODUCT USED FOR UNKNOWN INDICATION
     Route: 065

REACTIONS (4)
  - Monoclonal immunoglobulin present [Unknown]
  - Hypergammaglobulinaemia benign monoclonal [Unknown]
  - Immunoglobulins decreased [Unknown]
  - Bone pain [Unknown]
